FAERS Safety Report 9777563 (Version 1)
Quarter: 2013Q4

REPORT INFORMATION
  Report Type: Report from Study
  Country: VE (occurrence: VE)
  Receive Date: 20131222
  Receipt Date: 20131222
  Transmission Date: 20140711
  Serious: No
  Sender: FDA-Public Use
  Company Number: PHHY2013VE149790

PATIENT
  Age: 62 Year
  Sex: Male

DRUGS (3)
  1. TASIGNA [Suspect]
     Indication: CHRONIC MYELOID LEUKAEMIA
     Dosage: 800 MG, DAILY
     Route: 048
     Dates: start: 201204
  2. COZAAR [Concomitant]
  3. OMEPRAZOL//OMEPRAZOLE [Concomitant]

REACTIONS (1)
  - Leukocytosis [Unknown]
